FAERS Safety Report 4591003-5 (Version None)
Quarter: 2005Q1

REPORT INFORMATION
  Report Type: 
  Country: None (occurrence: None)
  Receive Date: 20050222
  Receipt Date: 20050222
  Transmission Date: 20050727
  Serious: Yes (Hospitalization, Other)
  Sender: FDA-Public Use
  Company Number: None

PATIENT
  Age: 40 Year
  Sex: Male
  Weight: 92.9874 kg

DRUGS (3)
  1. EFFEXOR [Suspect]
     Indication: DEPRESSION
     Dates: start: 20020722, end: 20030711
  2. KLONOPIN [Concomitant]
  3. SEROQUEL [Concomitant]

REACTIONS (6)
  - ALOPECIA [None]
  - BONE DISORDER [None]
  - DIABETES MELLITUS [None]
  - RADIAL NERVE PALSY [None]
  - SUICIDAL IDEATION [None]
  - THYROIDITIS [None]
